FAERS Safety Report 14183569 (Version 1)
Quarter: 2017Q4

REPORT INFORMATION
  Report Type: Spontaneous
  Country: FR (occurrence: FR)
  Receive Date: 20171113
  Receipt Date: 20171113
  Transmission Date: 20180321
  Serious: Yes (Other)
  Sender: FDA-Public Use
  Company Number: FR-PFIZER INC-2017478611

PATIENT
  Age: 28 Year
  Sex: Female

DRUGS (1)
  1. CYTOTEC [Suspect]
     Active Substance: MISOPROSTOL
     Indication: LABOUR INDUCTION
     Dosage: UNK, SINGLE
     Route: 067
     Dates: start: 20100304, end: 20100304

REACTIONS (5)
  - Product use in unapproved indication [Unknown]
  - Uterine hypotonus [Recovered/Resolved]
  - Amniorrhexis [Recovered/Resolved]
  - Foetal malpresentation [Recovered/Resolved]
  - Product use issue [Unknown]

NARRATIVE: CASE EVENT DATE: 20100304
